FAERS Safety Report 9818565 (Version 1)
Quarter: 2013Q4

REPORT INFORMATION
  Report Type: Spontaneous
  Country: US (occurrence: None)
  Receive Date: 20131223
  Receipt Date: 20131223
  Transmission Date: 20140711
  Serious: No
  Sender: FDA-Public Use
  Company Number: 2195416

PATIENT
  Age: 62 Year
  Sex: Female

DRUGS (5)
  1. PICATO [Suspect]
     Indication: ACTINIC KERATOSIS
     Dates: start: 20120718
  2. SIMVASTATIN(SIMVASTATIN) [Concomitant]
  3. TOPROL(METROPROLOL) [Concomitant]
  4. KETOCONAZOLE(KETOCONAZOLE) [Concomitant]
  5. FLUCINOLIDE(FLUCONONIDE) [Concomitant]

REACTIONS (6)
  - Application site erythema [None]
  - Application site reaction [None]
  - Skin lesion [None]
  - Application site infection [None]
  - Application site scab [None]
  - Application site pain [None]
